FAERS Safety Report 15401162 (Version 1)
Quarter: 2018Q3

REPORT INFORMATION
  Report Type: Spontaneous
  Country: US (occurrence: US)
  Receive Date: 20180914
  Receipt Date: 20180914
  Transmission Date: 20181010
  Serious: Yes (Other)
  Sender: FDA-Public Use
  Company Number: None

PATIENT
  Age: 55 Year
  Sex: Female
  Weight: 86.4 kg

DRUGS (12)
  1. DULOXETINE. [Concomitant]
     Active Substance: DULOXETINE
  2. NIFEDIPINE. [Suspect]
     Active Substance: NIFEDIPINE
     Indication: RAYNAUD^S PHENOMENON
     Dosage: ?          QUANTITY:1 CAPSULE(S);?
     Route: 048
     Dates: start: 20180723, end: 20180911
  3. LYRICA [Concomitant]
     Active Substance: PREGABALIN
  4. METHOTREXATE. [Concomitant]
     Active Substance: METHOTREXATE
  5. CLONIDINE. [Concomitant]
     Active Substance: CLONIDINE
  6. XARELTO [Concomitant]
     Active Substance: RIVAROXABAN
  7. PLAQUENIL [Concomitant]
     Active Substance: HYDROXYCHLOROQUINE SULFATE
  8. CENTRUM 50+ MULTIVITAMIN [Concomitant]
  9. PROBIOTIC [Concomitant]
     Active Substance: PROBIOTICS NOS
  10. FOLIC ACID. [Concomitant]
     Active Substance: FOLIC ACID
  11. NIFEDIPINE. [Suspect]
     Active Substance: NIFEDIPINE
     Indication: BLOOD PRESSURE MEASUREMENT
     Dosage: ?          QUANTITY:1 CAPSULE(S);?
     Route: 048
     Dates: start: 20180723, end: 20180911
  12. ASPRIN [Concomitant]
     Active Substance: ASPIRIN

REACTIONS (4)
  - Nausea [None]
  - Fatigue [None]
  - Influenza [None]
  - Chills [None]

NARRATIVE: CASE EVENT DATE: 20180910
